FAERS Safety Report 4477088-5 (Version None)
Quarter: 2004Q4

REPORT INFORMATION
  Report Type: 
  Country: None (occurrence: None)
  Receive Date: 20041018
  Receipt Date: 20041005
  Transmission Date: 20050328
  Serious: Yes (Other)
  Sender: FDA-Public Use
  Company Number: 200417638US

PATIENT
  Age: 34 Year
  Sex: Female

DRUGS (4)
  1. KETEK [Suspect]
     Indication: SINUSITIS
     Dates: start: 20040929, end: 20041002
  2. SYNTHROID [Concomitant]
     Dosage: DOSE: UNK
  3. PROZAC [Concomitant]
     Dosage: DOSE: UNK
  4. ORTHO TRI-CYCLEN [Concomitant]
     Dosage: DOSE: UNK

REACTIONS (7)
  - ACTIVITIES OF DAILY LIVING IMPAIRED [None]
  - DEPRESSED LEVEL OF CONSCIOUSNESS [None]
  - HEADACHE [None]
  - HEART RATE INCREASED [None]
  - HYPERTENSION [None]
  - NAUSEA [None]
  - VISION BLURRED [None]
